FAERS Safety Report 7682496-5 (Version None)
Quarter: 2011Q3

REPORT INFORMATION
  Report Type: 
  Country: None (occurrence: None)
  Receive Date: 20110815
  Receipt Date: 20110801
  Transmission Date: 20111222
  Serious: Yes (Other)
  Sender: FDA-Public Use
  Company Number: PHHY2011JP47050

PATIENT
  Sex: Male

DRUGS (16)
  1. IRBESARTAN [Concomitant]
     Dosage: 200 MG, UNK
  2. IRBESARTAN [Concomitant]
     Indication: HYPERTENSION
     Dosage: 100 MG, UNK
     Route: 048
     Dates: start: 20091219
  3. DOXAZOSIN MESYLATE [Concomitant]
     Dosage: 8 MG, UNK
     Route: 048
  4. LASIX [Concomitant]
     Dosage: 160 MG, UNK
     Route: 048
  5. CONIEL [Concomitant]
     Dosage: 8 MG, UNK
  6. ALISKIREN [Suspect]
     Indication: HYPERTENSION
     Dosage: 150 MG, ONCE DAILY
     Route: 048
     Dates: start: 20100210, end: 20100605
  7. LASIX [Concomitant]
     Dosage: 80 MG, UNK
  8. LASIX [Concomitant]
     Dosage: 80 MG, UNK
  9. CONIEL [Concomitant]
     Indication: HYPERTENSION
     Dosage: 4 MG, UNK
     Route: 048
     Dates: start: 20091219
  10. CARVEDILOL [Concomitant]
     Indication: HYPERTENSION
     Dosage: 10 MG, UNK
     Route: 048
     Dates: start: 20100125
  11. SOLDACTONE [Concomitant]
     Dosage: 100 MG, UNK
     Dates: start: 20100121
  12. LASIX [Concomitant]
     Dosage: 40 MG, UNK
     Route: 048
     Dates: start: 20091219, end: 20100605
  13. SOLDACTONE [Concomitant]
     Dosage: 200 MG, UNK
     Route: 048
     Dates: start: 20100121, end: 20100212
  14. DOXAZOSIN MESYLATE [Concomitant]
     Indication: HYPERTENSION
     Dosage: 2 MG, UNK
     Dates: start: 20100120
  15. ALDACTONE [Concomitant]
     Dosage: 200 MG, UNK
     Route: 048
     Dates: start: 20100213, end: 20100605
  16. LASIX [Concomitant]
     Dosage: 40 MG, UNK
     Route: 042
     Dates: start: 20100121, end: 20100212

REACTIONS (5)
  - PLEURAL EFFUSION [None]
  - ASCITES [None]
  - BLOOD UREA INCREASED [None]
  - BLOOD POTASSIUM INCREASED [None]
  - BLOOD CREATININE INCREASED [None]
